FAERS Safety Report 8432677-8 (Version None)
Quarter: 2012Q2

REPORT INFORMATION
  Report Type: 
  Country: None (occurrence: None)
  Receive Date: 20120607
  Receipt Date: 20120531
  Transmission Date: 20120825
  Serious: Yes (Hospitalization)
  Sender: FDA-Public Use
  Company Number: 134961

PATIENT
  Age: 83 Year
  Sex: Male
  Weight: 77 kg

DRUGS (1)
  1. LEUCOVORIN CALCIUM [Suspect]
     Indication: COLORECTAL CANCER METASTATIC
     Dosage: 400MG/M2 IV DAY 1 EVERY 14 DAYS
     Route: 042
     Dates: start: 20120501

REACTIONS (6)
  - SYNCOPE [None]
  - RHABDOMYOLYSIS [None]
  - NEUTROPHIL COUNT DECREASED [None]
  - HAND FRACTURE [None]
  - FALL [None]
  - WHITE BLOOD CELL COUNT DECREASED [None]
